FAERS Safety Report 22357290 (Version 1)
Quarter: 2023Q2

REPORT INFORMATION
  Report Type: Spontaneous
  Country: US (occurrence: US)
  Receive Date: 20230524
  Receipt Date: 20230524
  Transmission Date: 20230722
  Serious: No
  Sender: FDA-Public Use
  Company Number: US-GSK-US2023069964

PATIENT
  Sex: Male

DRUGS (1)
  1. BREO ELLIPTA [Suspect]
     Active Substance: FLUTICASONE FUROATE\VILANTEROL TRIFENATATE
     Indication: Bronchitis
     Dosage: 1 PUFF(S), QD INTO LUNGS DAILY (100/25 MCG)
     Dates: start: 201901, end: 202112

REACTIONS (3)
  - Fatigue [Not Recovered/Not Resolved]
  - Impaired work ability [Unknown]
  - Product use in unapproved indication [Unknown]
